FAERS Safety Report 6619560-5 (Version None)
Quarter: 2010Q1

REPORT INFORMATION
  Report Type: 
  Country: None (occurrence: None)
  Receive Date: 20100309
  Receipt Date: 20100225
  Transmission Date: 20100710
  Serious: Yes (Other)
  Sender: FDA-Public Use
  Company Number: US-EISAI INC.-E7273-00131-SPO-US

PATIENT
  Age: 82 Year
  Sex: Male
  Weight: 65 kg

DRUGS (1)
  1. TARGRETIN [Suspect]
     Route: 048

REACTIONS (5)
  - COUGH [None]
  - DECREASED APPETITE [None]
  - FATIGUE [None]
  - HYPOXIA [None]
  - LUNG INFILTRATION [None]
